FAERS Safety Report 7726251-6 (Version None)
Quarter: 2011Q3

REPORT INFORMATION
  Report Type: 
  Country: None (occurrence: None)
  Receive Date: 20110831
  Receipt Date: 20110825
  Transmission Date: 20111222
  Serious: Yes (Other)
  Sender: FDA-Public Use
  Company Number: TIR-00663

PATIENT
  Age: 48 Year
  Sex: Female

DRUGS (2)
  1. SYNTHROID [Suspect]
     Indication: HYPOTHYROIDISM
     Dosage: 50MCG DAILY
     Dates: start: 20090101, end: 20110810
  2. TIROSINT [Suspect]
     Indication: HYPOTHYROIDISM
     Dosage: ONE CAPSULE DAILY, ORAL
     Route: 048
     Dates: start: 20110811, end: 20110822

REACTIONS (6)
  - INSOMNIA [None]
  - VENTRICULAR EXTRASYSTOLES [None]
  - HOT FLUSH [None]
  - TREMOR [None]
  - HYPERHIDROSIS [None]
  - HYPERTHYROIDISM [None]
